FAERS Safety Report 5596685-7 (Version None)
Quarter: 2008Q1

REPORT INFORMATION
  Report Type: 
  Country: None (occurrence: None)
  Receive Date: 20080118
  Receipt Date: 20080109
  Transmission Date: 20080703
  Serious: Yes (Death)
  Sender: FDA-Public Use
  Company Number: US-PFIZER INC-2008002711

PATIENT
  Age: 10 Year
  Sex: Female

DRUGS (1)
  1. PENICILLIN G PROCAINE [Suspect]

REACTIONS (2)
  - ACCIDENTAL DRUG INTAKE BY CHILD [None]
  - MYCOTOXICOSIS [None]
